FAERS Safety Report 7275992-6 (Version None)
Quarter: 2011Q1

REPORT INFORMATION
  Report Type: 
  Country: None (occurrence: None)
  Receive Date: 20110204
  Receipt Date: 20110127
  Transmission Date: 20110831
  Serious: Yes (Death, Hospitalization)
  Sender: FDA-Public Use
  Company Number: B0677632A

PATIENT
  Sex: Male

DRUGS (6)
  1. CARBOPLATIN [Suspect]
     Route: 042
  2. KYTRIL [Concomitant]
     Dosage: 1MG PER DAY
     Dates: start: 20100825
  3. ALKERAN [Suspect]
     Indication: STEM CELL TRANSPLANT
     Dosage: 50MG PER DAY
     Route: 042
     Dates: start: 20100825, end: 20100826
  4. CLIVARINE [Concomitant]
     Dates: start: 20100823, end: 20100826
  5. PRODIF [Concomitant]
     Dosage: 64MG PER DAY
     Dates: start: 20100825
  6. VICCLOX [Concomitant]
     Dosage: 60MG PER DAY
     Route: 065
     Dates: start: 20100825, end: 20100826

REACTIONS (16)
  - BLOOD CREATININE INCREASED [None]
  - TONIC CONVULSION [None]
  - EYE DISORDER [None]
  - PIGMENTATION DISORDER [None]
  - HAEMORRHAGE INTRACRANIAL [None]
  - BRAIN OEDEMA [None]
  - EYE MOVEMENT DISORDER [None]
  - CEREBELLAR HAEMORRHAGE [None]
  - DISSEMINATED INTRAVASCULAR COAGULATION [None]
  - SKIN EXFOLIATION [None]
  - RENAL FAILURE [None]
  - URINE OUTPUT INCREASED [None]
  - HYPOXIC-ISCHAEMIC ENCEPHALOPATHY [None]
  - CYANOSIS [None]
  - STARING [None]
  - BLOOD UREA INCREASED [None]
